FAERS Safety Report 7215098-5 (Version None)
Quarter: 2011Q1

REPORT INFORMATION
  Report Type: 
  Country: None (occurrence: None)
  Receive Date: 20110107
  Receipt Date: 20101004
  Transmission Date: 20110831
  Serious: No
  Sender: FDA-Public Use
  Company Number: A0877243A

PATIENT
  Age: 58 Year
  Sex: Male

DRUGS (6)
  1. HYDROCHLOROTHIAZIDE [Concomitant]
  2. ASPIRIN [Concomitant]
  3. LOVAZA [Suspect]
     Dosage: 4G PER DAY
     Route: 048
     Dates: start: 20090801, end: 20100809
  4. ATENOLOL [Concomitant]
  5. NIASPAN [Concomitant]
  6. TRILIPIX [Concomitant]

REACTIONS (6)
  - URTICARIA [None]
  - CHEST PAIN [None]
  - RASH PRURITIC [None]
  - PRODUCT QUALITY ISSUE [None]
  - LIP SWELLING [None]
  - RHINORRHOEA [None]
